FAERS Safety Report 5245585-0 (Version None)
Quarter: 2007Q1

REPORT INFORMATION
  Report Type: 
  Country: None (occurrence: None)
  Receive Date: 20070216
  Receipt Date: 20070207
  Transmission Date: 20070707
  Serious: No
  Sender: FDA-Public Use
  Company Number: E2020-00961-SPO-PL

PATIENT
  Sex: Male

DRUGS (1)
  1. ARICEPT [Suspect]
     Indication: DRUG USE FOR UNKNOWN INDICATION
     Dosage: ORAL
     Route: 048

REACTIONS (1)
  - HYPERTHYROIDISM [None]
